FAERS Safety Report 18924909 (Version 2)
Quarter: 2021Q2

REPORT INFORMATION
  Report Type: Spontaneous
  Country: US (occurrence: US)
  Receive Date: 20210222
  Receipt Date: 20210512
  Transmission Date: 20210717
  Serious: No
  Sender: FDA-Public Use
  Company Number: US-PFIZER INC-2021051154

PATIENT
  Age: 82 Year
  Sex: Female

DRUGS (4)
  1. IBRANCE [Suspect]
     Active Substance: PALBOCICLIB
     Dosage: 75 MG, CYCLIC (7 DAYS ON AND 7 DAYS OFF)
     Dates: start: 20201222
  2. IBRANCE [Suspect]
     Active Substance: PALBOCICLIB
     Dosage: 75 MG, CYCLIC [7 DAYS ON AND 7 DAYS OFF)]
     Dates: start: 20201201
  3. IBRANCE [Suspect]
     Active Substance: PALBOCICLIB
     Dosage: 75 MG, CYCLIC (7 DAYS ON AND 7 DAYS OFF)
     Dates: start: 20201210
  4. IBRANCE [Suspect]
     Active Substance: PALBOCICLIB
     Dosage: 75 MG, CYCLIC (ONE WEEK ON AND ONE WEEK OFF AND CONTINUE)
     Dates: start: 20201221

REACTIONS (4)
  - Arthralgia [Unknown]
  - Arthritis [Unknown]
  - Off label use [Unknown]
  - Product use issue [Unknown]

NARRATIVE: CASE EVENT DATE: 20201210
